FAERS Safety Report 7446203-3 (Version None)
Quarter: 2011Q2

REPORT INFORMATION
  Report Type: 
  Country: None (occurrence: None)
  Receive Date: 20110429
  Receipt Date: 20110419
  Transmission Date: 20111010
  Serious: Yes (Other)
  Sender: FDA-Public Use
  Company Number: US-JNJFOC-20110408842

PATIENT
  Age: 4 Decade
  Sex: Female

DRUGS (4)
  1. HALDOL [Suspect]
     Route: 065
  2. HALDOL [Suspect]
     Indication: PRODUCT USED FOR UNKNOWN INDICATION
     Route: 065
  3. LATUDA [Suspect]
     Indication: SCHIZOPHRENIA
     Route: 048
  4. LATUDA [Suspect]
     Route: 048

REACTIONS (1)
  - MIGRAINE [None]
